FAERS Safety Report 15704144 (Version 1)
Quarter: 2018Q4

REPORT INFORMATION
  Report Type: Spontaneous
  Country: US (occurrence: US)
  Receive Date: 20181127
  Receipt Date: 20181127
  Transmission Date: 20190205
  Serious: Yes (Hospitalization)
  Sender: FDA-Public Use
  Company Number: None

PATIENT
  Age: 30 Year
  Sex: Female

DRUGS (3)
  1. HUMIRA [Suspect]
     Active Substance: ADALIMUMAB
     Indication: COLITIS
     Dosage: ?          OTHER FREQUENCY:EVERY 2 WEEKS;?
     Route: 058
  2. TRIAMCINOLON CRE 0.1% [Concomitant]
     Dates: start: 20180830
  3. CLOBETASOL CRE 0.05% [Concomitant]
     Dates: start: 20180913

REACTIONS (3)
  - Anxiety [None]
  - Mood altered [None]
  - Dyspnoea [None]

NARRATIVE: CASE EVENT DATE: 20181117
